FAERS Safety Report 6648198-9 (Version None)
Quarter: 2010Q1

REPORT INFORMATION
  Report Type: 
  Country: None (occurrence: None)
  Receive Date: 20100319
  Receipt Date: 20100303
  Transmission Date: 20100710
  Serious: Yes (Hospitalization, Other)
  Sender: FDA-Public Use
  Company Number: 10-023

PATIENT
  Age: 16 Year
  Sex: Male
  Weight: 59 kg

DRUGS (1)
  1. CEFTRIAXONE [Suspect]
     Indication: MENINGITIS BORRELIA
     Dosage: 2G, TWICE A DAY, IV
     Route: 042

REACTIONS (4)
  - CHOLECYSTITIS ACUTE [None]
  - CHOLELITHIASIS [None]
  - GALLBLADDER DISORDER [None]
  - GALLBLADDER NECROSIS [None]
